FAERS Safety Report 6932612-5 (Version None)
Quarter: 2010Q3

REPORT INFORMATION
  Report Type: 
  Country: None (occurrence: None)
  Receive Date: 20100819
  Receipt Date: 20100813
  Transmission Date: 20110219
  Serious: Yes (Hospitalization)
  Sender: FDA-Public Use
  Company Number: IT-JNJFOC-20100800394

PATIENT
  Sex: Male
  Weight: 100 kg

DRUGS (1)
  1. RISPERIDONE [Suspect]
     Indication: PSYCHOTIC DISORDER
     Route: 048

REACTIONS (3)
  - INTENTIONAL OVERDOSE [None]
  - MYOCARDIAL ISCHAEMIA [None]
  - SELF INJURIOUS BEHAVIOUR [None]
